FAERS Safety Report 19263187 (Version 4)
Quarter: 2025Q3

REPORT INFORMATION
  Report Type: Spontaneous
  Country: EU (occurrence: EU)
  Receive Date: 20210517
  Receipt Date: 20250905
  Transmission Date: 20251021
  Serious: Yes (Other)
  Sender: ALKEM
  Company Number: None

PATIENT
  Age: 39 Year
  Sex: Male

DRUGS (13)
  1. PREGABALIN [Interacting]
     Active Substance: PREGABALIN
     Indication: Product used for unknown indication
     Route: 065
  2. DRONABINOL [Interacting]
     Active Substance: DRONABINOL
     Indication: Product used for unknown indication
     Route: 065
  3. TEMAZEPAM [Interacting]
     Active Substance: TEMAZEPAM
     Indication: Product used for unknown indication
     Route: 065
  4. .ALPHA.-PYRROLIDINOPENTIOPHENONE [Interacting]
     Active Substance: .ALPHA.-PYRROLIDINOPENTIOPHENONE
     Indication: Product used for unknown indication
     Route: 065
  5. .ALPHA.-PYRROLIDINOVALEROTHIOPHENONE [Interacting]
     Active Substance: .ALPHA.-PYRROLIDINOVALEROTHIOPHENONE
     Indication: Product used for unknown indication
     Route: 065
  6. CLONAZEPAM [Interacting]
     Active Substance: CLONAZEPAM
     Indication: Product used for unknown indication
     Route: 065
  7. DIAZEPAM [Interacting]
     Active Substance: DIAZEPAM
     Indication: Product used for unknown indication
     Route: 065
  8. ALCOHOL [Interacting]
     Active Substance: ALCOHOL
     Indication: Product used for unknown indication
     Route: 065
  9. LEVOMETHADONE [Interacting]
     Active Substance: LEVOMETHADONE
     Indication: Product used for unknown indication
     Route: 065
  10. LORAZEPAM [Suspect]
     Active Substance: LORAZEPAM
     Indication: Product used for unknown indication
     Route: 065
  11. METHOXPHENIDINE [Interacting]
     Active Substance: METHOXPHENIDINE
     Indication: Product used for unknown indication
     Route: 065
  12. NORDAZEPAM [Interacting]
     Active Substance: NORDAZEPAM
     Indication: Product used for unknown indication
     Route: 065
  13. OXAZEPAM [Interacting]
     Active Substance: OXAZEPAM
     Indication: Product used for unknown indication
     Route: 065

REACTIONS (9)
  - Potentiating drug interaction [Unknown]
  - Cognitive disorder [Unknown]
  - Aggression [Unknown]
  - Aggression [Unknown]
  - Psychotic disorder [Unknown]
  - Substance abuse [Unknown]
  - Drug abuse [Unknown]
  - Daydreaming [Unknown]
  - Agitation [Unknown]
